FAERS Safety Report 6230141-8 (Version None)
Quarter: 2009Q2

REPORT INFORMATION
  Report Type: 
  Country: None (occurrence: None)
  Receive Date: 20090615
  Receipt Date: 20090605
  Transmission Date: 20091009
  Serious: Yes (Hospitalization)
  Sender: FDA-Public Use
  Company Number: PHHY2009KR23156

PATIENT
  Age: 72 Year
  Sex: Male

DRUGS (1)
  1. DICLOFENAC SODIUM [Suspect]
     Dosage: UNK
     Route: 030

REACTIONS (3)
  - EMBOLIA CUTIS MEDICAMENTOSA [None]
  - ERYTHEMA [None]
  - MUSCULOSKELETAL PAIN [None]
